FAERS Safety Report 6040705-2 (Version None)
Quarter: 2009Q1

REPORT INFORMATION
  Report Type: 
  Country: None (occurrence: None)
  Receive Date: 20090116
  Receipt Date: 20080508
  Transmission Date: 20090719
  Serious: No
  Sender: FDA-Public Use
  Company Number: US-BRISTOL-MYERS SQUIBB COMPANY-14182802

PATIENT
  Age: 22 Year
  Sex: Male
  Weight: 91 kg

DRUGS (2)
  1. ABILIFY [Suspect]
     Indication: DEPRESSION
     Dates: start: 20080430
  2. KLONOPIN [Concomitant]

REACTIONS (2)
  - AGITATION [None]
  - INSOMNIA [None]
